FAERS Safety Report 11403801 (Version 1)
Quarter: 2015Q3

REPORT INFORMATION
  Report Type: Spontaneous
  Country: US (occurrence: None)
  Receive Date: 20150820
  Receipt Date: 20150820
  Transmission Date: 20151125
  Serious: Yes (Hospitalization)
  Sender: FDA-Public Use
  Company Number: None

PATIENT
  Age: 17 Year
  Sex: Female
  Weight: 48.6 kg

DRUGS (1)
  1. CASPOFUNGIN ACETATE [Suspect]
     Active Substance: CASPOFUNGIN ACETATE
     Dates: end: 20150728

REACTIONS (4)
  - Pleural effusion [None]
  - Febrile neutropenia [None]
  - Respiratory tract infection fungal [None]
  - Respiratory distress [None]

NARRATIVE: CASE EVENT DATE: 20150729
